FAERS Safety Report 9401215 (Version 2)
Quarter: 2013Q3

REPORT INFORMATION
  Report Type: Spontaneous
  Country: US (occurrence: US)
  Receive Date: 20130715
  Receipt Date: 20130805
  Transmission Date: 20140515
  Serious: No
  Sender: FDA-Public Use
  Company Number: US-PFIZER INC-2013206435

PATIENT
  Age: 55 Year
  Sex: Female
  Weight: 70.3 kg

DRUGS (2)
  1. CYTOMEL [Suspect]
     Indication: THYROID DISORDER
     Dosage: 30 UG (BY TAKING 25MCG TABLET AND 5MCG AT A TIME), 1X/DAY
     Route: 048
     Dates: start: 20130711, end: 20130711
  2. CYTOMEL [Suspect]
     Indication: AUTOIMMUNE THYROIDITIS

REACTIONS (1)
  - Abdominal discomfort [Unknown]
